FAERS Safety Report 20625182 (Version 18)
Quarter: 2023Q1

REPORT INFORMATION
  Report Type: Spontaneous
  Country: GB (occurrence: GB)
  Receive Date: 20220323
  Receipt Date: 20230125
  Transmission Date: 20230418
  Serious: Yes (Other)
  Sender: FDA-Public Use
  Company Number: None

PATIENT
  Age: 44 Year
  Sex: Male

DRUGS (10)
  1. METHYLPHENIDATE HYDROCHLORIDE [Suspect]
     Active Substance: METHYLPHENIDATE HYDROCHLORIDE
     Indication: Product used for unknown indication
     Dosage: UNK ABUSE (UNSPECIFIED, BETWEEN FEBRUARY 2017 AND MAY 2017) PROLONGED-RELEASE TABLET
     Route: 065
     Dates: start: 20170201, end: 20170501
  2. METHYLPHENIDATE HYDROCHLORIDE [Suspect]
     Active Substance: METHYLPHENIDATE HYDROCHLORIDE
     Dosage: UNK, QD (PROLONGED-RELEASE TABLET)
     Route: 065
     Dates: start: 20170201, end: 20170202
  3. METHYLPHENIDATE HYDROCHLORIDE [Suspect]
     Active Substance: METHYLPHENIDATE HYDROCHLORIDE
     Dosage: UNK (UNSPECIFIED, BETWEEN FEBRUARY 2017 AND MAY 2017) PROLONGED-RELEASE TABLET
     Route: 065
     Dates: start: 20170201, end: 20170501
  4. METHYLPHENIDATE HYDROCHLORIDE [Suspect]
     Active Substance: METHYLPHENIDATE HYDROCHLORIDE
     Dosage: UNK (CAPSULE HARD)
     Route: 065
     Dates: start: 20170201, end: 20170201
  5. PREGABALIN [Suspect]
     Active Substance: PREGABALIN
     Indication: Product used for unknown indication
     Dosage: UNK, DOSAGE FORM: UNSPECIFIED, BETWEEN FEBRUARY 2017 AND MAY 2017; CAPSULE HARD
     Route: 065
     Dates: start: 20170201, end: 20170501
  6. PREGABALIN [Suspect]
     Active Substance: PREGABALIN
     Dosage: UNK, (BETWEEN FEBRUARY 2017 AND MAY 2017; PROLONGED-RELEASE TABLET)
     Route: 065
     Dates: start: 20170201, end: 20170501
  7. AMPHETAMINE [Concomitant]
     Active Substance: AMPHETAMINE
     Indication: Drug abuse
     Dosage: UNK
     Route: 065
  8. AMPHETAMINE [Concomitant]
     Active Substance: AMPHETAMINE
     Dosage: UNK
     Route: 065
  9. COCAINE [Concomitant]
     Active Substance: COCAINE
     Indication: Drug abuse
     Dosage: UNK
     Route: 065
  10. COCAINE [Concomitant]
     Active Substance: COCAINE
     Dosage: UNK
     Route: 065

REACTIONS (4)
  - Loss of consciousness [Recovered/Resolved]
  - Drug dependence [Unknown]
  - Drug abuse [Unknown]
  - Prescription drug used without a prescription [Unknown]
